FAERS Safety Report 13998122 (Version 1)
Quarter: 2017Q3

REPORT INFORMATION
  Report Type: Spontaneous
  Country: FR (occurrence: FR)
  Receive Date: 20170921
  Receipt Date: 20170921
  Transmission Date: 20171128
  Serious: Yes (Other)
  Sender: FDA-Public Use
  Company Number: FR-MERCK KGAA-2027193

PATIENT
  Age: 74 Year
  Sex: Female

DRUGS (1)
  1. NOVOTHYROX [Suspect]
     Active Substance: LEVOTHYROXINE SODIUM
     Indication: PRODUCT USED FOR UNKNOWN INDICATION
     Dates: start: 201705

REACTIONS (9)
  - Abdominal pain [Unknown]
  - Vomiting [Unknown]
  - Arrhythmia [Unknown]
  - Depressed mood [Unknown]
  - Respiratory disorder [Unknown]
  - Pain [Unknown]
  - Frequent bowel movements [Unknown]
  - Dizziness [Unknown]
  - Apathy [Unknown]

NARRATIVE: CASE EVENT DATE: 2017
